FAERS Safety Report 23952272 (Version 1)
Quarter: 2024Q2

REPORT INFORMATION
  Report Type: Spontaneous
  Country: JP (occurrence: JP)
  Receive Date: 20240607
  Receipt Date: 20240607
  Transmission Date: 20240716
  Serious: Yes (Hospitalization, Other)
  Sender: FDA-Public Use
  Company Number: JP-TAKEDA-2024TUS056966

PATIENT
  Age: 78 Year
  Sex: Male

DRUGS (1)
  1. ALOGLIPTIN [Suspect]
     Active Substance: ALOGLIPTIN
     Indication: Product used for unknown indication
     Dosage: 6.25 MILLIGRAM, QD
     Route: 065

REACTIONS (2)
  - Immunoglobulin G4 related disease [Unknown]
  - Pemphigoid [Unknown]
